FAERS Safety Report 6708730-3 (Version None)
Quarter: 2010Q2

REPORT INFORMATION
  Report Type: 
  Country: None (occurrence: None)
  Receive Date: 20100504
  Receipt Date: 20100420
  Transmission Date: 20101027
  Serious: Yes (Hospitalization)
  Sender: FDA-Public Use
  Company Number: FR-RANBAXY-2010RR-33119

PATIENT
  Age: 10 Year
  Sex: Male

DRUGS (11)
  1. OXCARBAZEPINE [Suspect]
     Dosage: 540 MG, UNK
  2. OXCARBAZEPINE [Suspect]
     Dosage: 510 MG, UNK
  3. OXCARBAZEPINE [Suspect]
     Dosage: 420 MG, UNK
  4. OXCARBAZEPINE [Suspect]
     Dosage: 540 MG, UNK
  5. OXCARBAZEPINE [Suspect]
     Dosage: 270 MG, UNK
  6. OXCARBAZEPINE [Suspect]
     Dosage: 480 MG, UNK
  7. CLARITHROMYCIN [Suspect]
     Dosage: 250 MG, BID
  8. LAMOTRIGINE [Concomitant]
     Dosage: 100 MG, BID
  9. VALPROIC ACID [Concomitant]
     Dosage: 100 MG, UNK
  10. VALPROIC ACID [Concomitant]
     Dosage: 300 MG, UNK
  11. TOPIRAMATE [Concomitant]
     Dosage: 100 MG, BID

REACTIONS (9)
  - ATAXIA [None]
  - DIZZINESS [None]
  - DRUG INTERACTION [None]
  - DRUG TOXICITY [None]
  - HYPERKINESIA [None]
  - NAUSEA [None]
  - NYSTAGMUS [None]
  - SOMNOLENCE [None]
  - VOMITING [None]
